FAERS Safety Report 4718043-7 (Version None)
Quarter: 2005Q3

REPORT INFORMATION
  Report Type: 
  Country: None (occurrence: None)
  Receive Date: 20050718
  Receipt Date: 20050718
  Transmission Date: 20060218
  Serious: Yes (Death, Hospitalization, Disabling)
  Sender: FDA-Public Use
  Company Number: None

PATIENT
  Age: 51 Year
  Sex: Male
  Weight: 86.1834 kg

DRUGS (1)
  1. FENTANYL [Suspect]
     Indication: SELF-MEDICATION

REACTIONS (23)
  - ABNORMAL BEHAVIOUR [None]
  - ANOREXIA [None]
  - ANOXIA [None]
  - APHASIA [None]
  - CHOKING [None]
  - CONFUSIONAL STATE [None]
  - DECUBITUS ULCER [None]
  - DEPRESSED LEVEL OF CONSCIOUSNESS [None]
  - DIFFICULTY IN WALKING [None]
  - DRUG ABUSER [None]
  - EXCESSIVE MASTURBATION [None]
  - INCORRECT ROUTE OF DRUG ADMINISTRATION [None]
  - INTENTIONAL MISUSE [None]
  - LEUKOENCEPHALOPATHY [None]
  - MEMORY IMPAIRMENT [None]
  - MENTAL DISORDER [None]
  - NERVOUS SYSTEM DISORDER [None]
  - ORAL DISCHARGE [None]
  - OVERDOSE [None]
  - PNEUMONIA [None]
  - REFUSAL OF TREATMENT BY PATIENT [None]
  - UNEVALUABLE EVENT [None]
  - WEIGHT DECREASED [None]
